FAERS Safety Report 8575740-3 (Version None)
Quarter: 2012Q3

REPORT INFORMATION
  Report Type: 
  Country: None (occurrence: None)
  Receive Date: 20120807
  Receipt Date: 20120803
  Transmission Date: 20120928
  Serious: Yes (Hospitalization, Other)
  Sender: FDA-Public Use
  Company Number: PHHY2012JP064652

PATIENT
  Age: 64 Year
  Sex: Male

DRUGS (4)
  1. IMATINIB MESYLATE [Suspect]
     Dosage: UNK UKN, UNK
  2. IMATINIB MESYLATE [Suspect]
     Dosage: UNK UKN, UNK
     Dates: start: 20090901
  3. IMATINIB MESYLATE [Suspect]
     Indication: CHRONIC MYELOID LEUKAEMIA
     Route: 048
  4. DASATINIB [Suspect]
     Indication: CHRONIC MYELOID LEUKAEMIA

REACTIONS (4)
  - BLAST CELL COUNT INCREASED [None]
  - MYELODYSPLASTIC SYNDROME [None]
  - CONDITION AGGRAVATED [None]
  - CHRONIC MYELOID LEUKAEMIA [None]
